FAERS Safety Report 6609435-X (Version None)
Quarter: 2010Q1

REPORT INFORMATION
  Report Type: 
  Country: None (occurrence: None)
  Receive Date: 20100225
  Receipt Date: 20100215
  Transmission Date: 20100710
  Serious: Yes (Death)
  Sender: FDA-Public Use
  Company Number: A-CH2010-33984

PATIENT
  Age: 70 Year
  Sex: Male

DRUGS (3)
  1. TRACLEER [Suspect]
     Indication: PULMONARY ARTERIAL HYPERTENSION
     Dosage: 62.5 MG, BID, ORAL
     Route: 048
     Dates: start: 20100126, end: 20100214
  2. BERAPROST SODIUM (BERAPROST SODIUM) [Concomitant]
  3. OXYGEN (OXYGEN) [Concomitant]

REACTIONS (3)
  - DYSPNOEA [None]
  - NASOPHARYNGITIS [None]
  - PNEUMONIA [None]
